FAERS Safety Report 9298738 (Version 4)
Quarter: 2013Q3

REPORT INFORMATION
  Report Type: Spontaneous
  Country: US (occurrence: US)
  Receive Date: 20130520
  Receipt Date: 20130802
  Transmission Date: 20140515
  Serious: Yes (Death, Hospitalization)
  Sender: FDA-Public Use
  Company Number: US-GLAXOSMITHKLINE-A1012946A

PATIENT
  Age: 30 Year
  Sex: Female
  Weight: 82 kg

DRUGS (12)
  1. FLOLAN [Suspect]
     Indication: PULMONARY ARTERIAL HYPERTENSION
     Dosage: 19NGKM CONTINUOUS
     Route: 042
     Dates: start: 20130128
  2. ADCIRCA [Concomitant]
     Dosage: 40MG PER DAY
     Route: 048
  3. LETAIRIS [Concomitant]
     Dosage: 10MG PER DAY
     Route: 048
  4. CELEXA [Concomitant]
  5. LOMOTIL [Concomitant]
  6. FLORASTOR [Concomitant]
  7. LORTAB [Concomitant]
  8. IBUPROFEN [Concomitant]
  9. OMEPRAZOLE [Concomitant]
  10. KCL [Concomitant]
  11. WARFARIN [Concomitant]
  12. AMBIEN [Concomitant]

REACTIONS (9)
  - Infusion site vesicles [Recovered/Resolved]
  - Infusion site pruritus [Recovered/Resolved]
  - Device leakage [Recovered/Resolved]
  - Catheter site related reaction [Recovered/Resolved]
  - Nausea [Recovered/Resolved]
  - Vomiting [Recovered/Resolved]
  - Clostridium difficile infection [Recovering/Resolving]
  - Impaired gastric emptying [Recovering/Resolving]
  - Death [Fatal]
